FAERS Safety Report 11929394 (Version 1)
Quarter: 2016Q1

REPORT INFORMATION
  Report Type: Spontaneous
  Country: US (occurrence: None)
  Receive Date: 20160119
  Receipt Date: 20160119
  Transmission Date: 20160526
  Serious: Yes (Life-Threatening, Disabling)
  Sender: FDA-Public Use
  Company Number: None

PATIENT
  Age: 68 Year
  Sex: Female
  Weight: 72.58 kg

DRUGS (4)
  1. CLONIDINE. [Concomitant]
     Active Substance: CLONIDINE
  2. POTASSIUM [Concomitant]
     Active Substance: POTASSIUM
  3. KYPROLIS [Suspect]
     Active Substance: CARFILZOMIB
     Indication: PLASMA CELL MYELOMA
     Dosage: INFUSION TWICE A WEEK FOR 3 INTO A VEIN
     Route: 042
     Dates: start: 20140918, end: 20151113
  4. FUROSEMIDE. [Suspect]
     Active Substance: FUROSEMIDE

REACTIONS (2)
  - Blood pressure inadequately controlled [None]
  - Blood pressure increased [None]

NARRATIVE: CASE EVENT DATE: 20151113
